FAERS Safety Report 9294765 (Version 1)
Quarter: 2013Q1

REPORT INFORMATION
  Report Type: Spontaneous
  Country: US (occurrence: US)
  Receive Date: 20121227
  Receipt Date: 20121227
  Transmission Date: 20140127
  Serious: Yes (Death)
  Sender: FDA-Public Use
  Company Number: PHEH2012US018181

PATIENT
  Age: 64 Year
  Sex: Female

DRUGS (2)
  1. EXJADE (*CGP 72670*) DISPERSIBLE TABLET [Suspect]
     Indication: MYELODYSPLASTIC SYNDROME
     Route: 048
     Dates: start: 201208, end: 201209
  2. REVLIMID (LENALIDOMIDE) [Suspect]
     Indication: PLASMA CELL MYELOMA
     Route: 048
     Dates: start: 200903, end: 201204

REACTIONS (2)
  - Haemorrhage intracranial [None]
  - Platelet count decreased [None]
